FAERS Safety Report 19246316 (Version 2)
Quarter: 2021Q2

REPORT INFORMATION
  Report Type: Spontaneous
  Country: FR (occurrence: FR)
  Receive Date: 20210512
  Receipt Date: 20210518
  Transmission Date: 20210717
  Serious: Yes (Death, Other)
  Sender: FDA-Public Use
  Company Number: FR-PFIZER INC-2021513585

PATIENT
  Age: 91 Year
  Sex: Male
  Weight: 67 kg

DRUGS (1)
  1. VYNDAQEL [Suspect]
     Active Substance: TAFAMIDIS MEGLUMINE
     Dosage: 80 MG, DAILY

REACTIONS (2)
  - Cardiac failure chronic [Unknown]
  - Death [Fatal]

NARRATIVE: CASE EVENT DATE: 20210506
